FAERS Safety Report 25679401 (Version 1)
Quarter: 2025Q3

REPORT INFORMATION
  Report Type: Spontaneous
  Country: EU (occurrence: EU)
  Receive Date: 20250814
  Receipt Date: 20250814
  Transmission Date: 20251021
  Serious: Yes (Other)
  Sender: ACCORD
  Company Number: None

PATIENT
  Age: 50 Year
  Sex: Female
  Weight: 99 kg

DRUGS (2)
  1. OXALIPLATIN [Suspect]
     Active Substance: OXALIPLATIN
     Indication: Colorectal cancer
     Dates: start: 20250411, end: 20250411
  2. CAPECITABINE [Concomitant]
     Active Substance: CAPECITABINE

REACTIONS (4)
  - Acute polyneuropathy [Recovering/Resolving]
  - Bronchospasm [Recovering/Resolving]
  - Muscle twitching [Recovering/Resolving]
  - Eye disorder [Recovering/Resolving]
